FAERS Safety Report 15378640 (Version 1)
Quarter: 2018Q3

REPORT INFORMATION
  Report Type: Spontaneous
  Country: US (occurrence: US)
  Receive Date: 20180906
  Receipt Date: 20180906
  Transmission Date: 20181010
  Serious: No
  Sender: FDA-Public Use
  Company Number: None

PATIENT
  Age: 26 Year
  Sex: Female

DRUGS (1)
  1. SYMDEKO [Suspect]
     Active Substance: IVACAFTOR\TEZACAFTOR
     Indication: CYSTIC FIBROSIS
     Dates: start: 201807, end: 201808

REACTIONS (7)
  - Chest discomfort [None]
  - Diarrhoea [None]
  - Therapy cessation [None]
  - Decreased appetite [None]
  - Constipation [None]
  - Migraine [None]
  - Dyspnoea [None]

NARRATIVE: CASE EVENT DATE: 20180716
